FAERS Safety Report 12524754 (Version 3)
Quarter: 2019Q4

REPORT INFORMATION
  Report Type: Spontaneous
  Country: US (occurrence: US)
  Receive Date: 20160704
  Receipt Date: 20191108
  Transmission Date: 20200122
  Serious: Yes (Other)
  Sender: FDA-Public Use
  Company Number: US-PFIZER INC-2016326335

PATIENT
  Age: 53 Year
  Sex: Male

DRUGS (8)
  1. LEVITRA [Suspect]
     Active Substance: VARDENAFIL HYDROCHLORIDE
     Dosage: 20 MG, 2 TO 3 PER WEEK
     Dates: start: 20110204, end: 20120530
  2. VIAGRA [Suspect]
     Active Substance: SILDENAFIL CITRATE
     Indication: ERECTILE DYSFUNCTION
     Dosage: 50 MG, 1X PER WEEK
     Route: 048
     Dates: start: 200503, end: 200506
  3. VIAGRA [Suspect]
     Active Substance: SILDENAFIL CITRATE
     Dosage: UNK
     Route: 048
     Dates: start: 201011, end: 201101
  4. CIALIS [Suspect]
     Active Substance: TADALAFIL
     Indication: ERECTILE DYSFUNCTION
     Dosage: UNK
     Route: 048
     Dates: start: 201011, end: 201101
  5. VIAGRA [Suspect]
     Active Substance: SILDENAFIL CITRATE
     Dosage: 0.5 DF , 2X PER WEEK
     Route: 048
     Dates: start: 201205, end: 201604
  6. LEVITRA [Suspect]
     Active Substance: VARDENAFIL HYDROCHLORIDE
     Indication: ERECTILE DYSFUNCTION
     Dosage: UNK
     Dates: start: 201011, end: 201101
  7. CIALIS [Suspect]
     Active Substance: TADALAFIL
     Dosage: 20 MG, 3X PER WEEK
     Route: 048
     Dates: start: 20101215, end: 2013
  8. VIAGRA [Suspect]
     Active Substance: SILDENAFIL CITRATE
     Dosage: UNK, REGULARLY
     Route: 048
     Dates: start: 201012, end: 2016

REACTIONS (2)
  - Superficial spreading melanoma stage unspecified [Unknown]
  - Malignant melanoma in situ [Unknown]

NARRATIVE: CASE EVENT DATE: 20130823
